FAERS Safety Report 14374334 (Version 1)
Quarter: 2018Q1

REPORT INFORMATION
  Report Type: Spontaneous
  Country: FR (occurrence: FR)
  Receive Date: 20180111
  Receipt Date: 20180111
  Transmission Date: 20180509
  Serious: Yes (Other)
  Sender: FDA-Public Use
  Company Number: FR-MERCK KGAA-2039902

PATIENT
  Age: 71 Year
  Sex: Male
  Weight: 63 kg

DRUGS (8)
  1. NOVOTHYROX [Suspect]
     Active Substance: LEVOTHYROXINE SODIUM
     Route: 048
     Dates: start: 20170630, end: 20170913
  2. NOVOTHYROX [Suspect]
     Active Substance: LEVOTHYROXINE SODIUM
     Indication: THYROIDECTOMY
     Route: 048
     Dates: start: 20170630, end: 20171009
  3. COLECALCIFEROL [Concomitant]
     Active Substance: CHOLECALCIFEROL
     Route: 048
  4. GLYCEROL\PARAFFIN [Concomitant]
     Active Substance: GLYCERIN\PARAFFIN
     Route: 003
  5. OXAZEPAM. [Concomitant]
     Active Substance: OXAZEPAM
     Route: 048
  6. ESCITALOPRAM [Concomitant]
     Active Substance: ESCITALOPRAM OXALATE
     Route: 048
  7. KETOCONAZOLE. [Concomitant]
     Active Substance: KETOCONAZOLE
     Route: 003
  8. PARACETAMOL [Concomitant]
     Active Substance: ACETAMINOPHEN
     Route: 048

REACTIONS (18)
  - Headache [Not Recovered/Not Resolved]
  - Tendonitis [Not Recovered/Not Resolved]
  - Tremor [Not Recovered/Not Resolved]
  - Fatigue [Not Recovered/Not Resolved]
  - Sleep disorder [Not Recovered/Not Resolved]
  - Blood thyroid stimulating hormone decreased [Recovered/Resolved]
  - Cold sweat [Not Recovered/Not Resolved]
  - Depression [Not Recovered/Not Resolved]
  - Balance disorder [Not Recovered/Not Resolved]
  - Malaise [Not Recovered/Not Resolved]
  - Tachycardia [Not Recovered/Not Resolved]
  - Muscle spasms [Not Recovered/Not Resolved]
  - Blood thyroid stimulating hormone increased [Not Recovered/Not Resolved]
  - Vertigo [Not Recovered/Not Resolved]
  - Diffuse alopecia [Not Recovered/Not Resolved]
  - Chills [Not Recovered/Not Resolved]
  - Back pain [Not Recovered/Not Resolved]
  - Pain [Not Recovered/Not Resolved]

NARRATIVE: CASE EVENT DATE: 20170720
